FAERS Safety Report 24940087 (Version 1)
Quarter: 2025Q1

REPORT INFORMATION
  Report Type: Spontaneous
  Country: CH (occurrence: CH)
  Receive Date: 20250207
  Receipt Date: 20250207
  Transmission Date: 20250409
  Serious: Yes (Hospitalization)
  Sender: Haleon PLC
  Company Number: CH-HALEON-2225281

PATIENT
  Age: 70 Year
  Sex: Male
  Weight: 85 kg

DRUGS (1)
  1. NICOTINELL [Suspect]
     Active Substance: NICOTINE
     Indication: Ex-tobacco user

REACTIONS (4)
  - Oesophagitis [Unknown]
  - Product use issue [Unknown]
  - Spleen disorder [Unknown]
  - Intentional overdose [Unknown]
